FAERS Safety Report 5473789-0 (Version None)
Quarter: 2007Q4

REPORT INFORMATION
  Report Type: 
  Country: None (occurrence: None)
  Receive Date: 20071001
  Receipt Date: 20031028
  Transmission Date: 20080405
  Serious: Yes (Other)
  Sender: FDA-Public Use
  Company Number: US-PFIZER INC-2007058648

PATIENT
  Age: 48 Year
  Sex: Female

DRUGS (1)
  1. BEXTRA [Suspect]
     Indication: INJURY

REACTIONS (2)
  - HAEMORRHAGE [None]
  - UTERINE HAEMORRHAGE [None]
